FAERS Safety Report 25346794 (Version 2)
Quarter: 2025Q2

REPORT INFORMATION
  Report Type: Spontaneous
  Country: JP (occurrence: JP)
  Receive Date: 20250522
  Receipt Date: 20250623
  Transmission Date: 20250716
  Serious: Yes (Hospitalization)
  Sender: MERCK SHARP & DOHME LLC
  Company Number: JP-009507513-2265346

PATIENT
  Age: 59 Year
  Sex: Female

DRUGS (4)
  1. KEYTRUDA [Suspect]
     Active Substance: PEMBROLIZUMAB
     Dosage: 200MG, Q3W
     Route: 042
     Dates: start: 202501
  2. TAXOTERE [Concomitant]
     Active Substance: DOCETAXEL
     Indication: Squamous cell carcinoma of the cervix
  3. CYCLOPHOSPHAMIDE [Concomitant]
     Active Substance: CYCLOPHOSPHAMIDE
     Indication: Squamous cell carcinoma of the cervix
  4. BEVACIZUMAB [Suspect]
     Active Substance: BEVACIZUMAB
     Indication: Squamous cell carcinoma of the cervix
     Dates: start: 202501

REACTIONS (2)
  - Immune-mediated encephalitis [Recovered/Resolved]
  - Encephalitis herpes [Recovered/Resolved]

NARRATIVE: CASE EVENT DATE: 20250301
